FAERS Safety Report 11600821 (Version 1)
Quarter: 2015Q4

REPORT INFORMATION
  Report Type: Spontaneous
  Country: US (occurrence: US)
  Receive Date: 20151006
  Receipt Date: 20151006
  Transmission Date: 20160304
  Serious: No
  Sender: FDA-Public Use
  Company Number: US-AMGEN-USASP2015004967

PATIENT
  Age: 52 Year
  Sex: Female

DRUGS (6)
  1. ATENOLOL. [Concomitant]
     Active Substance: ATENOLOL
     Indication: PALPITATIONS
  2. VITAMINS                           /00067501/ [Concomitant]
     Active Substance: VITAMINS
  3. ALPRAZOLAM. [Concomitant]
     Active Substance: ALPRAZOLAM
     Indication: ANXIETY
  4. MIRALAX [Concomitant]
     Active Substance: POLYETHYLENE GLYCOL 3350
     Indication: COELIAC DISEASE
  5. VITAMIN D                          /00107901/ [Concomitant]
     Active Substance: ERGOCALCIFEROL
  6. PROLIA [Suspect]
     Active Substance: DENOSUMAB
     Indication: PRODUCT USED FOR UNKNOWN INDICATION
     Dosage: UNK
     Route: 065
     Dates: start: 2013

REACTIONS (11)
  - Back pain [Unknown]
  - Musculoskeletal pain [Unknown]
  - Pain [Not Recovered/Not Resolved]
  - Arthralgia [Unknown]
  - Fatigue [Unknown]
  - Activities of daily living impaired [Unknown]
  - Hypersensitivity [Unknown]
  - Pain in extremity [Unknown]
  - Urticaria [Recovered/Resolved]
  - Food allergy [Unknown]
  - Immune system disorder [Unknown]

NARRATIVE: CASE EVENT DATE: 2014
